FAERS Safety Report 9263732 (Version 4)
Quarter: 2013Q3

REPORT INFORMATION
  Report Type: Report from Study
  Country: JP (occurrence: JP)
  Receive Date: 20130430
  Receipt Date: 20130703
  Transmission Date: 20140515
  Serious: Yes (Other)
  Sender: FDA-Public Use
  Company Number: JP-PFIZER INC-2013129361

PATIENT
  Age: 72 Year
  Sex: Male
  Weight: 62.5 kg

DRUGS (11)
  1. SUNITINIB MALATE [Suspect]
     Indication: METASTATIC RENAL CELL CARCINOMA
     Dosage: 50 MG, WEEKLY
     Dates: start: 20090408, end: 20090423
  2. SUNITINIB MALATE [Suspect]
     Dosage: 37.5 MG, WEEKLY
     Dates: start: 20090527, end: 20090621
  3. SUNITINIB MALATE [Suspect]
     Dosage: 25 MG, WEEKLY
     Dates: start: 20090614, end: 20090810
  4. DIOVAN [Concomitant]
     Dosage: 80 MG, 1X/DAY
     Route: 048
     Dates: end: 20090409
  5. DIOVAN [Concomitant]
     Dosage: 160 MG, 1X/DAY
     Route: 048
     Dates: start: 20090410, end: 20090422
  6. LASIX [Concomitant]
     Dosage: 20 MG, 1X/DAY
     Route: 048
     Dates: start: 20090409, end: 20090422
  7. PASTARON [Concomitant]
     Indication: PROPHYLAXIS
     Dosage: ADEQUATE DOSE, 2-3 TIMES DAILY
     Dates: start: 20090409
  8. LONGES [Concomitant]
     Dosage: 10 MG, 1X/DAY
     Route: 048
     Dates: start: 20090416, end: 20090422
  9. CARDENALIN [Concomitant]
     Dosage: 2 MG, 2X/DAY
     Route: 048
     Dates: start: 20090417, end: 20090420
  10. CARDENALIN [Concomitant]
     Dosage: 4 MG, 2X/DAY
     Route: 048
     Dates: start: 20090421, end: 20090422
  11. NORVASC [Concomitant]
     Dosage: 5 MG, 1X/DAY
     Route: 048
     Dates: start: 20090422, end: 20090422

REACTIONS (2)
  - Atrial fibrillation [Recovered/Resolved]
  - Platelet count decreased [Recovered/Resolved]
